FAERS Safety Report 19204793 (Version 2)
Quarter: 2022Q4

REPORT INFORMATION
  Report Type: Report from Study
  Country: US (occurrence: US)
  Receive Date: 20210503
  Receipt Date: 20221027
  Transmission Date: 20230112
  Serious: No
  Sender: FDA-Public Use
  Company Number: US-KYOWAKIRIN-2021BKK006772

PATIENT

DRUGS (3)
  1. CRYSVITA [Suspect]
     Active Substance: BUROSUMAB-TWZA
     Indication: Hereditary hypophosphataemic rickets
     Dosage: 60 MG, 1X/2 WEEKS
     Route: 058
     Dates: start: 20200728
  2. CRYSVITA [Suspect]
     Active Substance: BUROSUMAB-TWZA
     Dosage: 80 MG, 1X/2 WEEKS, (STRENGTH 20 AND 30 MG/ML COMBINED TO ACHIEVE DOSE OF 80 MG)
     Route: 058
  3. CRYSVITA [Suspect]
     Active Substance: BUROSUMAB-TWZA
     Indication: Hereditary hypophosphataemic rickets
     Dosage: 80 MG, 1X/2 WEEKS, (STRENGTH 20 AND 30 MG/ML COMBINED TO ACHIEVE DOSE OF 80 MG)
     Route: 058
     Dates: start: 20200728

REACTIONS (2)
  - Blood phosphorus decreased [Unknown]
  - Erythema [Unknown]

NARRATIVE: CASE EVENT DATE: 20220909
